FAERS Safety Report 16465327 (Version 7)
Quarter: 2020Q1

REPORT INFORMATION
  Report Type: Report from Study
  Country: DE (occurrence: DE)
  Receive Date: 20190621
  Receipt Date: 20200218
  Transmission Date: 20200409
  Serious: Yes (Life-Threatening, Disabling, Other)
  Sender: FDA-Public Use
  Company Number: DE-BRISTOL-MYERS SQUIBB COMPANY-BMS-2018-111636

PATIENT
  Age: 81 Year
  Sex: Male

DRUGS (3)
  1. DACARBAZIN [Suspect]
     Active Substance: DACARBAZINE
     Indication: MALIGNANT MELANOMA
     Dosage: 850 MILLIGRAM/SQ. METER
     Route: 065
     Dates: start: 201904
  2. NOVALGIN (METAMIZOLE SODIUM) [Concomitant]
     Active Substance: METAMIZOLE SODIUM
     Indication: PRODUCT USED FOR UNKNOWN INDICATION
     Dosage: UNK
     Route: 065
  3. NIVOLUMAB [Suspect]
     Active Substance: NIVOLUMAB
     Indication: MALIGNANT MELANOMA
     Dosage: 240 MG, Q2WK
     Route: 042
     Dates: start: 20181120, end: 20190308

REACTIONS (9)
  - Leukopenia [Recovering/Resolving]
  - Rash maculo-papular [Recovering/Resolving]
  - Dry mouth [Unknown]
  - Subcutaneous abscess [Recovering/Resolving]
  - Gamma-glutamyltransferase increased [Recovered/Resolved]
  - Pain [Recovering/Resolving]
  - Malignant neoplasm progression [Unknown]
  - Fatigue [Recovering/Resolving]
  - Stomatitis [Recovered/Resolved]

NARRATIVE: CASE EVENT DATE: 20181120
